FAERS Safety Report 18189243 (Version 2)
Quarter: 2020Q3

REPORT INFORMATION
  Report Type: Spontaneous
  Country: JP (occurrence: JP)
  Receive Date: 20200824
  Receipt Date: 20200827
  Transmission Date: 20201103
  Serious: Yes (Hospitalization)
  Sender: FDA-Public Use
  Company Number: JP-ELI_LILLY_AND_COMPANY-JP202008007885

PATIENT
  Age: 74 Year
  Sex: Male

DRUGS (3)
  1. URSO S [Concomitant]
     Route: 065
  2. LIXIANA [Concomitant]
     Active Substance: EDOXABAN TOSYLATE
     Route: 065
  3. CYRAMZA [Suspect]
     Active Substance: RAMUCIRUMAB
     Indication: HEPATOCELLULAR CARCINOMA
     Route: 042

REACTIONS (1)
  - Pneumonitis [Not Recovered/Not Resolved]
